FAERS Safety Report 6399233-7 (Version None)
Quarter: 2009Q4

REPORT INFORMATION
  Report Type: 
  Country: None (occurrence: None)
  Receive Date: 20091014
  Receipt Date: 20071220
  Transmission Date: 20100525
  Serious: Yes (Other)
  Sender: FDA-Public Use
  Company Number: US-ASTRAZENECA-2006UW23144

PATIENT
  Age: 17173 Day
  Sex: Female
  Weight: 111.6 kg

DRUGS (23)
  1. SEROQUEL [Suspect]
     Indication: SCHIZOPHRENIA
     Route: 048
     Dates: start: 20030101, end: 20070101
  2. SEROQUEL [Suspect]
     Indication: BIPOLAR DISORDER
     Route: 048
     Dates: start: 20030101, end: 20070101
  3. SEROQUEL [Suspect]
     Indication: DEPRESSION
     Route: 048
     Dates: start: 20030101, end: 20070101
  4. SEROQUEL [Suspect]
     Dosage: 100-400 MG AT NIGHT
     Route: 048
     Dates: start: 20050201
  5. SEROQUEL [Suspect]
     Dosage: 100-400 MG AT NIGHT
     Route: 048
     Dates: start: 20050201
  6. SEROQUEL [Suspect]
     Dosage: 100-400 MG AT NIGHT
     Route: 048
     Dates: start: 20050201
  7. TRENDAL [Concomitant]
  8. METHOCARBAM [Concomitant]
  9. NEURONTIN [Concomitant]
     Indication: NEUROPATHY PERIPHERAL
     Route: 048
     Dates: start: 20050505
  10. NEURONTIN [Concomitant]
     Indication: HYPOAESTHESIA
     Route: 048
     Dates: start: 20050505
  11. CYMBALTA [Concomitant]
     Indication: NEUROPATHY PERIPHERAL
     Dates: start: 20051117
  12. LEXAPRO [Concomitant]
     Route: 048
     Dates: start: 20050427
  13. DEPAKOTE [Concomitant]
     Dosage: 500-2000 MG DAILY
     Route: 048
     Dates: start: 20050506
  14. COMBIVENT [Concomitant]
     Dosage: 2 PUFFS TWO TIMES A DAY
     Dates: start: 20050505
  15. ADVAIR DISKUS 100/50 [Concomitant]
     Dosage: 250/50-1 PUFF TWO TIMES A DAY
     Dates: start: 20050505
  16. REMERON [Concomitant]
     Dates: start: 20070102
  17. CELEXA [Concomitant]
     Dates: start: 20070102
  18. PREVACID [Concomitant]
     Dates: start: 20070102
  19. AVANDIA [Concomitant]
     Dates: start: 20070102
  20. ULTRAM [Concomitant]
     Dates: start: 20070102
  21. ROBAXIN [Concomitant]
     Dates: start: 20070102
  22. LUNESTA [Concomitant]
     Indication: INSOMNIA
     Route: 048
     Dates: start: 20061116
  23. AVAPRO [Concomitant]
     Dates: start: 20061116

REACTIONS (8)
  - BLOOD CHOLESTEROL INCREASED [None]
  - DIABETES MELLITUS [None]
  - DIABETIC HYPEROSMOLAR COMA [None]
  - DIABETIC NEUROPATHY [None]
  - DIABETIC RETINOPATHY [None]
  - NEUROPATHY PERIPHERAL [None]
  - TYPE 1 DIABETES MELLITUS [None]
  - TYPE 2 DIABETES MELLITUS [None]
